FAERS Safety Report 4837965-X (Version None)
Quarter: 2005Q4

REPORT INFORMATION
  Report Type: 
  Country: None (occurrence: None)
  Receive Date: 20051128
  Receipt Date: 20051117
  Transmission Date: 20060501
  Serious: Yes (Congenital Anomaly)
  Sender: FDA-Public Use
  Company Number: US-ROCHE-425282

PATIENT
  Age: 2 Week
  Sex: Female

DRUGS (1)
  1. ISOTRETINOIN [Suspect]
     Dates: start: 19941215, end: 19941215

REACTIONS (9)
  - CLEFT PALATE [None]
  - CONGENITAL CEREBELLAR AGENESIS [None]
  - CONGENITAL OPTIC NERVE ANOMALY [None]
  - DISORDER OF ORBIT [None]
  - DRUG EXPOSURE DURING PREGNANCY [None]
  - HIRSUTISM [None]
  - LOW SET EARS [None]
  - MICROGNATHIA [None]
  - PREGNANCY [None]
